FAERS Safety Report 15579092 (Version 1)
Quarter: 2018Q4

REPORT INFORMATION
  Report Type: Report from Study
  Country: CA (occurrence: CA)
  Receive Date: 20181102
  Receipt Date: 20181102
  Transmission Date: 20190205
  Serious: Yes (Other)
  Sender: FDA-Public Use
  Company Number: CA-SA-2018SA274053

PATIENT
  Age: 73 Year
  Sex: Male

DRUGS (7)
  1. AMLODIPINE [Suspect]
     Active Substance: AMLODIPINE BESYLATE
     Dosage: UNK
     Route: 065
  2. DEXAMETHASONE. [Suspect]
     Active Substance: DEXAMETHASONE
     Dosage: UNK
  3. ATENOLOL. [Suspect]
     Active Substance: ATENOLOL
     Dosage: UNK
  4. FUROSEMIDE. [Suspect]
     Active Substance: FUROSEMIDE
     Dosage: UNK
  5. IRBESARTAN. [Suspect]
     Active Substance: IRBESARTAN
     Route: 065
  6. HYDROCHLOROTHIAZIDE. [Suspect]
     Active Substance: HYDROCHLOROTHIAZIDE
     Dosage: UNK
     Route: 065
  7. CANDESARTAN. [Suspect]
     Active Substance: CANDESARTAN
     Dosage: UNK

REACTIONS (7)
  - Hypotension [Unknown]
  - Asthenia [Unknown]
  - Fall [Unknown]
  - Withdrawal syndrome [Unknown]
  - Hypovolaemia [Unknown]
  - Adrenal insufficiency [Unknown]
  - Acute kidney injury [Unknown]
